FAERS Safety Report 20901192 (Version 2)
Quarter: 2022Q3

REPORT INFORMATION
  Report Type: Spontaneous
  Country: JP (occurrence: JP)
  Receive Date: 20220601
  Receipt Date: 20220701
  Transmission Date: 20221027
  Serious: Yes (Other)
  Sender: FDA-Public Use
  Company Number: JP-BRISTOL-MYERS SQUIBB COMPANY-2022-050178

PATIENT
  Age: 56 Year
  Sex: Male

DRUGS (3)
  1. VIDAZA [Suspect]
     Active Substance: AZACITIDINE
     Indication: Acute myeloid leukaemia
     Route: 042
  2. VIDAZA [Suspect]
     Active Substance: AZACITIDINE
     Indication: Chromosomal deletion
  3. VENETOCLAX [Concomitant]
     Active Substance: VENETOCLAX
     Indication: Acute myeloid leukaemia
     Route: 065

REACTIONS (3)
  - Cellulitis [Recovered/Resolved]
  - Corynebacterium infection [Recovered/Resolved]
  - Neutropenia [Not Recovered/Not Resolved]
